FAERS Safety Report 6399316-1 (Version None)
Quarter: 2009Q4

REPORT INFORMATION
  Report Type: 
  Country: None (occurrence: None)
  Receive Date: 20091014
  Receipt Date: 20091005
  Transmission Date: 20100525
  Serious: Yes (Hospitalization, Other)
  Sender: FDA-Public Use
  Company Number: US-CELGENEUS-163-20785-09090269

PATIENT
  Sex: Male

DRUGS (16)
  1. THALOMID [Suspect]
     Route: 048
     Dates: start: 20090403, end: 20090101
  2. THALOMID [Suspect]
     Indication: COLON CANCER
  3. TAXOTERE/CDDP [Concomitant]
     Route: 065
     Dates: start: 20090702
  4. LUPRON [Concomitant]
     Indication: DRUG USE FOR UNKNOWN INDICATION
     Route: 065
  5. ZOMETA [Concomitant]
     Indication: DRUG USE FOR UNKNOWN INDICATION
     Route: 065
     Dates: start: 20090205
  6. ZOMETA [Concomitant]
     Route: 065
     Dates: start: 20081016
  7. TAXOTERE [Concomitant]
     Indication: DRUG USE FOR UNKNOWN INDICATION
     Route: 065
     Dates: start: 20090205, end: 20090101
  8. PREDNISONE [Concomitant]
     Indication: DRUG USE FOR UNKNOWN INDICATION
     Route: 048
     Dates: start: 20090205
  9. CLONIDINE [Concomitant]
     Indication: DRUG USE FOR UNKNOWN INDICATION
     Route: 048
  10. COLCHICINE [Concomitant]
     Indication: DRUG USE FOR UNKNOWN INDICATION
     Route: 048
  11. DARVOCET-N 100 [Concomitant]
     Indication: DRUG USE FOR UNKNOWN INDICATION
     Dosage: 100
     Route: 048
  12. FOLIC ACID [Concomitant]
     Indication: DRUG USE FOR UNKNOWN INDICATION
     Route: 048
     Dates: start: 20081016
  13. DURAGESIC-25 [Concomitant]
     Indication: DRUG USE FOR UNKNOWN INDICATION
  14. JANTOVEN [Concomitant]
     Indication: DRUG USE FOR UNKNOWN INDICATION
     Route: 048
  15. COUMADIN [Concomitant]
     Indication: DRUG USE FOR UNKNOWN INDICATION
     Route: 048
     Dates: end: 20090101
  16. VITAMIN B-12 [Concomitant]
     Route: 030

REACTIONS (8)
  - ANAEMIA [None]
  - ASTHENIA [None]
  - COLON CANCER [None]
  - DYSPNOEA [None]
  - DYSPNOEA EXERTIONAL [None]
  - FATIGUE [None]
  - PULMONARY EMBOLISM [None]
  - RENAL FAILURE [None]
